FAERS Safety Report 10437919 (Version 1)
Quarter: 2014Q3

REPORT INFORMATION
  Report Type: Spontaneous
  Country: IN (occurrence: None)
  Receive Date: 20140904
  Receipt Date: 20140904
  Transmission Date: 20150326
  Serious: Yes (Hospitalization, Other)
  Sender: FDA-Public Use
  Company Number: IN-ZYDUS-004509

PATIENT
  Age: 55 Year
  Sex: Male

DRUGS (2)
  1. RAMIPRIL. [Suspect]
     Active Substance: RAMIPRIL
  2. LITHIUM [Suspect]
     Active Substance: LITHIUM CARBONATE
     Indication: BIPOLAR DISORDER

REACTIONS (9)
  - Vomiting [None]
  - Sinus arrest [None]
  - Blood pressure decreased [None]
  - Dizziness [None]
  - Toxicity to various agents [None]
  - Nodal rhythm [None]
  - Drug interaction [None]
  - Syncope [None]
  - Antipsychotic drug level above therapeutic [None]
